FAERS Safety Report 8790595 (Version 1)
Quarter: 2012Q4

REPORT INFORMATION
  Report Type: Spontaneous
  Country: US (occurrence: None)
  Receive Date: 20120912
  Receipt Date: 20120912
  Transmission Date: 20130627
  Serious: Yes (Hospitalization)
  Sender: FDA-Public Use
  Company Number: None

PATIENT
  Age: 54 Year
  Sex: Male
  Weight: 131.5 kg

DRUGS (2)
  1. TELAPREVIR [Suspect]
     Indication: HEPATITIS C
     Route: 048
     Dates: start: 20120307, end: 20120601
  2. PEGINTERFERON [Suspect]
     Route: 058
     Dates: start: 20120307

REACTIONS (5)
  - Pyrexia [None]
  - Neck pain [None]
  - Staphylococcal infection [None]
  - Bacteraemia [None]
  - Intervertebral disc disorder [None]
